FAERS Safety Report 4704870-9 (Version None)
Quarter: 2005Q3

REPORT INFORMATION
  Report Type: 
  Country: None (occurrence: None)
  Receive Date: 20050701
  Receipt Date: 20050624
  Transmission Date: 20060218
  Serious: Yes (Hospitalization)
  Sender: FDA-Public Use
  Company Number: PHNU2005DE02376

PATIENT
  Age: 40 Year
  Sex: Male

DRUGS (6)
  1. LEPONEX / CLOZARIL (CLOZAPINE) [Suspect]
     Indication: SCHIZOAFFECTIVE DISORDER
     Route: 048
     Dates: start: 20010201, end: 20020301
  2. LEPONEX / CLOZARIL (CLOZAPINE) [Suspect]
     Route: 048
     Dates: start: 20020301, end: 20050125
  3. LEPONEX / CLOZARIL (CLOZAPINE) [Suspect]
     Route: 048
     Dates: start: 20050126, end: 20050127
  4. RISPERDAL [Concomitant]
     Route: 048
     Dates: start: 20000301, end: 20050127
  5. ORFIRIL [Concomitant]
     Route: 048
     Dates: start: 20030401, end: 20050127
  6. RESONIUM A [Concomitant]
     Route: 048
     Dates: end: 20050127

REACTIONS (2)
  - BUNDLE BRANCH BLOCK LEFT [None]
  - CARDIAC DISORDER [None]
